FAERS Safety Report 4448098-9 (Version None)
Quarter: 2004Q3

REPORT INFORMATION
  Report Type: 
  Country: None (occurrence: None)
  Receive Date: 20040913
  Receipt Date: 20040819
  Transmission Date: 20050211
  Serious: Yes (Death)
  Sender: FDA-Public Use
  Company Number: NO-BRISTOL-MYERS SQUIBB COMPANY-12676805

PATIENT
  Age: 31 Year
  Sex: Male

DRUGS (6)
  1. PLATINOL [Suspect]
     Indication: TESTIS CANCER
     Dates: start: 20040713, end: 20040718
  2. VEPESID [Suspect]
     Indication: TESTIS CANCER
  3. BLEOMYCIN SULFATE [Suspect]
     Indication: TESTIS CANCER
     Dosage: 30,000 IU
     Dates: start: 20040622, end: 20040627
  4. DEXAMETHASONE [Concomitant]
     Indication: ANTIEMETIC SUPPORTIVE CARE
  5. ZOFRAN [Concomitant]
     Indication: ANTIEMETIC SUPPORTIVE CARE
  6. DIAZEPAM [Concomitant]
     Indication: SEDATION

REACTIONS (1)
  - MYOCARDIAL INFARCTION [None]
